FAERS Safety Report 5218056-5 (Version None)
Quarter: 2007Q1

REPORT INFORMATION
  Report Type: 
  Country: None (occurrence: None)
  Receive Date: 20061130
  Receipt Date: 20060901
  Transmission Date: 20070707
  Serious: Yes (Other)
  Sender: FDA-Public Use
  Company Number: US200609001510

PATIENT
  Age: 47 Year
  Sex: Female
  Weight: 97.1 kg

DRUGS (2)
  1. ZYPREXA [Suspect]
     Indication: DEPRESSION
     Dosage: 100 MG
     Dates: start: 20000301, end: 20010801
  2. SEROQUEL /UNK/(QUETIAPINEFUMARATE) [Concomitant]

REACTIONS (4)
  - DIABETES MELLITUS [None]
  - METABOLIC DISORDER [None]
  - PANCREATITIS [None]
  - PRESCRIBED OVERDOSE [None]
